FAERS Safety Report 12965021 (Version 1)
Quarter: 2016Q4

REPORT INFORMATION
  Report Type: Spontaneous
  Country: CH (occurrence: CH)
  Receive Date: 20161122
  Receipt Date: 20161122
  Transmission Date: 20170207
  Serious: Yes (Other)
  Sender: FDA-Public Use
  Company Number: CH-ELI_LILLY_AND_COMPANY-CH201611004366

PATIENT
  Age: 47 Year
  Sex: Female

DRUGS (7)
  1. ALIMTA [Suspect]
     Active Substance: PEMETREXED DISODIUM
     Indication: NON-SMALL CELL LUNG CANCER
     Dosage: UNK, CYCLICAL
     Route: 065
     Dates: start: 20090722, end: 20091106
  2. CARBOPLATIN. [Suspect]
     Active Substance: CARBOPLATIN
     Dosage: UNK, CYCLICAL
     Route: 065
     Dates: start: 20110419, end: 20110530
  3. AVASTIN [Suspect]
     Active Substance: BEVACIZUMAB
     Indication: CHEMOTHERAPY
     Dosage: UNK, CYCLICAL
     Route: 065
     Dates: start: 20090722, end: 20091106
  4. CARBOPLATIN. [Suspect]
     Active Substance: CARBOPLATIN
     Indication: NON-SMALL CELL LUNG CANCER
     Dosage: UNK, CYCLICAL
     Route: 065
     Dates: start: 20090722, end: 20091106
  5. ALIMTA [Suspect]
     Active Substance: PEMETREXED DISODIUM
     Dosage: UNK, CYCLICAL
     Route: 065
     Dates: start: 20110419, end: 20110530
  6. ZOMETA [Suspect]
     Active Substance: ZOLEDRONIC ACID
     Indication: PRODUCT USED FOR UNKNOWN INDICATION
     Dosage: UNK UNK, UNKNOWN
     Route: 065
     Dates: start: 20090722, end: 20120417
  7. AVASTIN [Suspect]
     Active Substance: BEVACIZUMAB
     Dosage: UNK, UNKNOWN
     Route: 065
     Dates: start: 20091202, end: 20110202

REACTIONS (6)
  - Atelectasis [Unknown]
  - Drug hypersensitivity [Unknown]
  - Malignant neoplasm progression [Not Recovered/Not Resolved]
  - Cauda equina syndrome [Unknown]
  - Pleural effusion [Unknown]
  - Metastases to liver [Unknown]

NARRATIVE: CASE EVENT DATE: 201101
